FAERS Safety Report 6781090-8 (Version None)
Quarter: 2010Q2

REPORT INFORMATION
  Report Type: 
  Country: None (occurrence: None)
  Receive Date: 20100617
  Receipt Date: 20100617
  Transmission Date: 20101027
  Serious: Yes (Hospitalization)
  Sender: FDA-Public Use
  Company Number: None

PATIENT
  Age: 74 Year
  Sex: Male

DRUGS (2)
  1. COLCHICINE [Suspect]
     Indication: GOUT
     Dosage: 0.6 MG BID PO
     Route: 048
     Dates: start: 20100204, end: 20100406
  2. ALLOPURINOL [Suspect]
     Dosage: 100 MG EVERY DAY PO
     Route: 048
     Dates: start: 20100113, end: 20100406

REACTIONS (4)
  - DEHYDRATION [None]
  - DIARRHOEA [None]
  - PANCYTOPENIA [None]
  - RENAL FAILURE ACUTE [None]
